FAERS Safety Report 17456496 (Version 2)
Quarter: 2020Q1

REPORT INFORMATION
  Report Type: Spontaneous
  Country: US (occurrence: US)
  Receive Date: 20200225
  Receipt Date: 20200305
  Transmission Date: 20200409
  Serious: No
  Sender: FDA-Public Use
  Company Number: US-ELI_LILLY_AND_COMPANY-US202002009365

PATIENT
  Sex: Male

DRUGS (1)
  1. HUMULIN R [Suspect]
     Active Substance: INSULIN HUMAN
     Indication: TYPE 1 DIABETES MELLITUS
     Dosage: 1500 U, DAILY
     Route: 058
     Dates: start: 2009

REACTIONS (3)
  - Malaise [Recovering/Resolving]
  - Drug ineffective [Unknown]
  - Blood glucose increased [Recovered/Resolved]
